FAERS Safety Report 5297605-5 (Version None)
Quarter: 2007Q2

REPORT INFORMATION
  Report Type: 
  Country: None (occurrence: None)
  Receive Date: 20070416
  Receipt Date: 20070406
  Transmission Date: 20071010
  Serious: Yes (Hospitalization)
  Sender: FDA-Public Use
  Company Number: US-ROCHE-467350

PATIENT
  Age: 20 Year
  Sex: Male
  Weight: 63.5 kg

DRUGS (3)
  1. ACCUTANE [Suspect]
     Indication: ACNE
     Route: 048
     Dates: start: 19820615, end: 19830615
  2. BENZOYL PEROXIDE [Concomitant]
     Indication: ACNE
     Route: 061
  3. SALICYLIC ACID [Concomitant]
     Indication: ACNE
     Route: 061

REACTIONS (23)
  - ABDOMINAL WALL MASS [None]
  - ANAEMIA [None]
  - ANXIETY [None]
  - ARTHRITIS [None]
  - BLOOD CHOLESTEROL INCREASED [None]
  - CEREBROVASCULAR ACCIDENT [None]
  - COLITIS [None]
  - COLITIS ULCERATIVE [None]
  - CONVULSION [None]
  - CROHN'S DISEASE [None]
  - DEPRESSION [None]
  - DIVERTICULITIS [None]
  - INFLAMMATORY BOWEL DISEASE [None]
  - INTESTINAL HAEMORRHAGE [None]
  - INTESTINAL OBSTRUCTION [None]
  - INTESTINAL PERFORATION [None]
  - IRRITABLE BOWEL SYNDROME [None]
  - MORBID THOUGHTS [None]
  - OESOPHAGITIS [None]
  - PERITONITIS [None]
  - PROCTITIS [None]
  - SINUS BRADYCARDIA [None]
  - THROMBOCYTOPENIA [None]
